FAERS Safety Report 6048737-5 (Version None)
Quarter: 2009Q1

REPORT INFORMATION
  Report Type: 
  Country: None (occurrence: None)
  Receive Date: 20090123
  Receipt Date: 20090115
  Transmission Date: 20090719
  Serious: Yes (Hospitalization)
  Sender: FDA-Public Use
  Company Number: GB-ABBOTT-09P-167-0498961-00

PATIENT
  Age: 72 Year
  Sex: Female

DRUGS (13)
  1. WARFARIN [Suspect]
     Indication: DEEP VEIN THROMBOSIS
     Route: 048
  2. PROTIUM TABLET [Suspect]
     Indication: DRUG USE FOR UNKNOWN INDICATION
     Route: 048
  3. CARBAMAZEPINE [Suspect]
     Indication: EPILEPSY
     Route: 048
  4. ANADIN [Suspect]
     Indication: DRUG USE FOR UNKNOWN INDICATION
     Route: 048
  5. ALENDRONIC ACID [Suspect]
     Indication: OSTEOARTHRITIS
     Route: 048
  6. CALCICHEW [Suspect]
     Indication: OSTEOARTHRITIS
     Route: 048
  7. CODEINE PHOSPHATE [Suspect]
     Indication: MIGRAINE
     Route: 048
  8. GAVISCON [Suspect]
     Indication: DRUG USE FOR UNKNOWN INDICATION
     Route: 048
  9. RISEDRONATE SODIUM [Suspect]
     Indication: OSTEOARTHRITIS
     Route: 048
  10. SERETIDE [Suspect]
     Indication: ASTHMA
     Route: 055
  11. VENTOLIN [Suspect]
     Indication: ASTHMA
     Route: 055
  12. LEVOTHYROXINE [Suspect]
     Indication: HYPOTHYROIDISM
     Route: 048
  13. ZOLMITRIPTAN [Suspect]
     Indication: MIGRAINE
     Route: 048

REACTIONS (2)
  - COUGH [None]
  - DYSPNOEA [None]
